FAERS Safety Report 18446625 (Version 1)
Quarter: 2020Q4

REPORT INFORMATION
  Report Type: Spontaneous
  Country: US (occurrence: US)
  Receive Date: 20201030
  Receipt Date: 20201030
  Transmission Date: 20210114
  Serious: No
  Sender: FDA-Public Use
  Company Number: None

PATIENT
  Age: 64 Year
  Sex: Male
  Weight: 76.2 kg

DRUGS (1)
  1. AMIKACIN. [Suspect]
     Active Substance: AMIKACIN
     Indication: DECUBITUS ULCER
     Route: 042
     Dates: start: 20201018, end: 20201029

REACTIONS (2)
  - Therapy change [None]
  - Ototoxicity [None]

NARRATIVE: CASE EVENT DATE: 20201029
